FAERS Safety Report 4294434-6 (Version None)
Quarter: 2004Q1

REPORT INFORMATION
  Report Type: 
  Country: None (occurrence: None)
  Receive Date: 20040211
  Receipt Date: 20040126
  Transmission Date: 20041129
  Serious: Yes (Hospitalization)
  Sender: FDA-Public Use
  Company Number: USA020921349

PATIENT
  Age: 72 Year
  Sex: Female
  Weight: 52 kg

DRUGS (11)
  1. HUMULIN N [Suspect]
     Indication: DIABETES MELLITUS
  2. HUMALOG [Suspect]
     Indication: DIABETES MELLITUS
     Dates: start: 20011001
  3. LANTUS [Concomitant]
  4. PREVACID [Concomitant]
  5. ATIVAN [Concomitant]
  6. THYROID TAB [Concomitant]
  7. PLAVIX [Concomitant]
  8. ILETIN [Suspect]
     Indication: DIABETES MELLITUS
  9. HUMULIN L [Suspect]
     Indication: DIABETES MELLITUS
  10. ZYPREXA [Suspect]
     Dosage: 10 MG/DAY
     Dates: start: 20031201
  11. HUMULIN R [Suspect]
     Indication: DIABETES MELLITUS

REACTIONS (6)
  - BLOOD GLUCOSE FLUCTUATION [None]
  - CEREBROVASCULAR ACCIDENT [None]
  - FALL [None]
  - HIP FRACTURE [None]
  - IRRITABILITY [None]
  - TRIPLE VESSEL BYPASS GRAFT [None]
